FAERS Safety Report 5640956-2 (Version None)
Quarter: 2008Q1

REPORT INFORMATION
  Report Type: 
  Country: None (occurrence: None)
  Receive Date: 20080225
  Receipt Date: 20080210
  Transmission Date: 20080703
  Serious: Yes (Hospitalization)
  Sender: FDA-Public Use
  Company Number: A0706700A

PATIENT
  Age: 77 Year
  Sex: 0

DRUGS (3)
  1. AVANDIA [Suspect]
     Indication: DEMENTIA ALZHEIMER'S TYPE
     Dosage: 2 MG/ PER DAY / ORAL
     Route: 048
     Dates: start: 20070607
  2. LORAZEPAM [Concomitant]
  3. RIVASTIGMINE HYDROG.TARTR [Concomitant]

REACTIONS (11)
  - ANOREXIA [None]
  - BLOOD POTASSIUM DECREASED [None]
  - BLOOD PRESSURE SYSTOLIC INCREASED [None]
  - CONFUSIONAL STATE [None]
  - DEHYDRATION [None]
  - DIZZINESS [None]
  - ELECTROLYTE IMBALANCE [None]
  - FALL [None]
  - HYPONATRAEMIA [None]
  - ORTHOSTATIC HYPOTENSION [None]
  - URINARY INCONTINENCE [None]
